FAERS Safety Report 15642550 (Version 1)
Quarter: 2018Q4

REPORT INFORMATION
  Report Type: Spontaneous
  Country: US (occurrence: US)
  Receive Date: 20181121
  Receipt Date: 20181121
  Transmission Date: 20190205
  Serious: No
  Sender: FDA-Public Use
  Company Number: US-GLENMARK PHARMACEUTICALS-2018GMK037607

PATIENT

DRUGS (3)
  1. MUPIROCIN. [Suspect]
     Active Substance: MUPIROCIN
     Indication: POSTOPERATIVE CARE
     Dosage: UNK, OD
     Route: 061
     Dates: start: 20180926
  2. CEPHALEXIN                         /00145501/ [Concomitant]
     Active Substance: CEPHALEXIN
     Indication: ANTIBIOTIC THERAPY
     Dosage: 500 MG, QID (EVERY 6 HOURS)
     Route: 048
     Dates: start: 20180924
  3. TRAMADOL. [Concomitant]
     Active Substance: TRAMADOL
     Indication: PAIN
     Dosage: 50 MG, BID
     Route: 048
     Dates: start: 20180924

REACTIONS (3)
  - Accidental exposure to product [Unknown]
  - Product use in unapproved indication [Unknown]
  - Eye swelling [Unknown]

NARRATIVE: CASE EVENT DATE: 20180926
